FAERS Safety Report 7051732-0 (Version None)
Quarter: 2010Q4

REPORT INFORMATION
  Report Type: 
  Country: None (occurrence: None)
  Receive Date: 20101019
  Receipt Date: 20100928
  Transmission Date: 20110411
  Serious: Yes (Other)
  Sender: FDA-Public Use
  Company Number: PHHY2010BR67656

PATIENT
  Age: 31 Year
  Sex: Male
  Weight: 99 kg

DRUGS (2)
  1. DIOVAN AMLO FIX [Suspect]
     Dosage: 160/5 MG DAILY
  2. DIOVAN AMLO FIX [Suspect]
     Dosage: 320/10 MG DAILY

REACTIONS (5)
  - ALBUMINURIA [None]
  - ASPARTATE AMINOTRANSFERASE INCREASED [None]
  - HYPERTENSION [None]
  - RETINOPATHY HYPERTENSIVE [None]
  - ULTRASOUND KIDNEY ABNORMAL [None]
